FAERS Safety Report 10703708 (Version 18)
Quarter: 2024Q2

REPORT INFORMATION
  Report Type: Report from Study
  Country: CA (occurrence: CA)
  Receive Date: 20150112
  Receipt Date: 20240627
  Transmission Date: 20240715
  Serious: Yes (Hospitalization, Other)
  Sender: FDA-Public Use
  Company Number: CA-ROCHE-1136281

PATIENT
  Age: 61 Year
  Sex: Female
  Weight: 124.7 kg

DRUGS (39)
  1. RITUXAN [Suspect]
     Active Substance: RITUXIMAB
     Indication: Rheumatoid arthritis
     Dosage: PREVIOUS RITUXIMAB DOSE WAS ON 15/JUN/2017.?PREVIOUS RITUXIMAB DOSE WAS ON 28/AUG/2018
     Route: 041
     Dates: start: 20101014
  2. RITUXAN [Suspect]
     Active Substance: RITUXIMAB
     Indication: Myasthenia gravis
     Dosage: FREQUENCY TEXT:DAY 1 AND DAY 15
     Route: 042
     Dates: start: 20110504
  3. RITUXAN [Suspect]
     Active Substance: RITUXIMAB
     Route: 042
     Dates: start: 20120926, end: 20121018
  4. RITUXAN [Suspect]
     Active Substance: RITUXIMAB
     Dosage: LAST INFUSION ON 11/JUL/2014
     Route: 042
     Dates: start: 20130530, end: 20140521
  5. RITUXAN [Suspect]
     Active Substance: RITUXIMAB
     Dosage: FREQUENCY TEXT:DAY 1 AND 15
     Route: 042
     Dates: start: 20150114, end: 20150901
  6. RITUXAN [Suspect]
     Active Substance: RITUXIMAB
     Dosage: FREQUENCY TEXT:DAY 1 AND 15
     Route: 042
     Dates: start: 20150821
  7. RITUXAN [Suspect]
     Active Substance: RITUXIMAB
     Dosage: FOUR DOSES PER COURSE. NO PIRS AVAILABLE SINCE 15/JUN/2017
     Route: 042
     Dates: start: 20170601, end: 20170615
  8. RITUXAN [Suspect]
     Active Substance: RITUXIMAB
     Dosage: Q 6MONTHS
     Route: 042
     Dates: start: 20220405, end: 20220405
  9. RITUXAN [Suspect]
     Active Substance: RITUXIMAB
     Route: 042
     Dates: start: 20140528, end: 20140611
  10. RITUXAN [Suspect]
     Active Substance: RITUXIMAB
     Route: 042
     Dates: start: 20150910, end: 20150910
  11. RITUXAN [Suspect]
     Active Substance: RITUXIMAB
     Route: 042
     Dates: start: 20160727
  12. RITUXAN [Suspect]
     Active Substance: RITUXIMAB
     Route: 042
     Dates: start: 20170216, end: 20170302
  13. RITUXAN [Suspect]
     Active Substance: RITUXIMAB
     Route: 042
     Dates: start: 20171122, end: 20171213
  14. RITUXAN [Suspect]
     Active Substance: RITUXIMAB
     Route: 042
     Dates: start: 20180727, end: 20180828
  15. RITUXAN [Suspect]
     Active Substance: RITUXIMAB
     Route: 042
     Dates: start: 20190124, end: 20190228
  16. RITUXAN [Suspect]
     Active Substance: RITUXIMAB
     Route: 042
     Dates: start: 20190905, end: 20190925
  17. RITUXAN [Suspect]
     Active Substance: RITUXIMAB
     Route: 042
     Dates: start: 20200408, end: 20200428
  18. RITUXAN [Suspect]
     Active Substance: RITUXIMAB
     Route: 042
     Dates: start: 20210422, end: 20210517
  19. RITUXAN [Suspect]
     Active Substance: RITUXIMAB
     Route: 042
     Dates: start: 20220307, end: 20220413
  20. RITUXAN [Suspect]
     Active Substance: RITUXIMAB
     Route: 042
     Dates: start: 20221108
  21. METFORMIN [Suspect]
     Active Substance: METFORMIN HYDROCHLORIDE
     Indication: Diabetes mellitus
     Route: 048
     Dates: start: 2012, end: 2012
  22. FOLIC ACID [Concomitant]
     Active Substance: FOLIC ACID
  23. VITAMIN B6 [Concomitant]
     Active Substance: PYRIDOXINE HYDROCHLORIDE
  24. LORAZEPAM [Concomitant]
     Active Substance: LORAZEPAM
     Dosage: FREQUENCY TEXT:AS REQUIRED
  25. MESTINON [Concomitant]
     Active Substance: PYRIDOSTIGMINE BROMIDE
     Indication: Product used for unknown indication
     Route: 065
     Dates: end: 2012
  26. PROGESTERONE [Concomitant]
     Active Substance: PROGESTERONE
  27. METHOTREXATE [Concomitant]
     Active Substance: METHOTREXATE
  28. TESTOSTERONE [Concomitant]
     Active Substance: TESTOSTERONE
  29. PREDNISONE [Concomitant]
     Active Substance: PREDNISONE
  30. ESTROGEL [Concomitant]
     Active Substance: ESTRADIOL
  31. CLONAZEPAM [Concomitant]
     Active Substance: CLONAZEPAM
  32. DIPHENHYDRAMINE HYDROCHLORIDE [Concomitant]
     Active Substance: DIPHENHYDRAMINE HYDROCHLORIDE
     Indication: Premedication
     Route: 048
     Dates: start: 20110504
  33. DIPHENHYDRAMINE HYDROCHLORIDE [Concomitant]
     Active Substance: DIPHENHYDRAMINE HYDROCHLORIDE
     Route: 048
     Dates: start: 20220405, end: 20220405
  34. ACETAMINOPHEN [Concomitant]
     Active Substance: ACETAMINOPHEN
     Indication: Premedication
     Route: 048
     Dates: start: 20110504
  35. ACETAMINOPHEN [Concomitant]
     Active Substance: ACETAMINOPHEN
     Route: 048
     Dates: start: 20220405, end: 20220405
  36. METHYLPREDNISOLONE [Concomitant]
     Active Substance: METHYLPREDNISOLONE
     Indication: Premedication
     Route: 042
     Dates: start: 20110504
  37. METHYLPREDNISOLONE [Concomitant]
     Active Substance: METHYLPREDNISOLONE
     Route: 042
     Dates: start: 20220405, end: 20220405
  38. INSULIN NOS [Concomitant]
     Active Substance: INSULIN NOS
  39. IMURAN [Concomitant]
     Active Substance: AZATHIOPRINE

REACTIONS (32)
  - Weight increased [Recovering/Resolving]
  - Myasthenia gravis [Not Recovered/Not Resolved]
  - Diabetes mellitus [Unknown]
  - Pain [Not Recovered/Not Resolved]
  - Meningitis [Unknown]
  - Influenza [Unknown]
  - Optic neuropathy [Recovering/Resolving]
  - Myocardial necrosis marker increased [Recovered/Resolved]
  - Dyspnoea [Unknown]
  - Diabetes mellitus inadequate control [Not Recovered/Not Resolved]
  - Hepatic steatosis [Not Recovered/Not Resolved]
  - Wrist fracture [Unknown]
  - Upper limb fracture [Unknown]
  - Arthralgia [Not Recovered/Not Resolved]
  - Hordeolum [Unknown]
  - Drug intolerance [Unknown]
  - Solar lentigo [Recovered/Resolved]
  - Fall [Unknown]
  - Arthritis [Not Recovered/Not Resolved]
  - Headache [Unknown]
  - Fibromyalgia [Unknown]
  - Throat irritation [Recovering/Resolving]
  - Stress [Not Recovered/Not Resolved]
  - Insomnia [Unknown]
  - Drug ineffective [Unknown]
  - Malaise [Unknown]
  - Asthenia [Unknown]
  - Off label use [Unknown]
  - Contusion [Recovered/Resolved]
  - Balance disorder [Unknown]
  - Dizziness [Unknown]
  - Weight decreased [Unknown]

NARRATIVE: CASE EVENT DATE: 20120101
